FAERS Safety Report 6431172-5 (Version None)
Quarter: 2009Q4

REPORT INFORMATION
  Report Type: 
  Country: None (occurrence: None)
  Receive Date: 20091106
  Receipt Date: 20091104
  Transmission Date: 20100525
  Serious: Yes (Life-Threatening, Hospitalization, Other)
  Sender: FDA-Public Use
  Company Number: GB-B.I. PHARMACEUTICALS,INC./RIDGEFIELD-2009-UK-00984UK

PATIENT
  Age: 39 Year
  Sex: Male

DRUGS (10)
  1. HYOSCINE (0015/5005R/0074R) [Suspect]
     Dates: start: 20090217
  2. SENNA [Suspect]
     Indication: CONSTIPATION
     Route: 048
  3. CLOZARIL [Suspect]
     Indication: SCHIZOPHRENIA
     Route: 048
     Dates: start: 20031202
  4. CLOMIPRAMINE [Suspect]
     Indication: ANXIETY
     Route: 048
     Dates: start: 20090217
  5. LISINOPRIL [Suspect]
     Indication: HYPERTENSION
     Dosage: 5 MG
     Route: 048
     Dates: start: 20090217
  6. METFORMIN [Suspect]
     Indication: TYPE 2 DIABETES MELLITUS
     Dosage: 500 MG
     Route: 048
     Dates: start: 20090217
  7. OMEPRAZOLE [Suspect]
     Dates: start: 20090217
  8. SIMVASTASTIN [Suspect]
     Indication: BLOOD CHOLESTEROL INCREASED
     Route: 048
  9. THIAMIDE [Suspect]
     Dosage: 100MG TID
     Route: 048
  10. THIAMINE HCL [Concomitant]
     Dosage: 100 MG
     Route: 048

REACTIONS (5)
  - AGITATION [None]
  - COMA SCALE ABNORMAL [None]
  - NEUTROPHIL COUNT INCREASED [None]
  - OVERDOSE [None]
  - WHITE BLOOD CELL COUNT INCREASED [None]
